FAERS Safety Report 17280378 (Version 2)
Quarter: 2022Q1

REPORT INFORMATION
  Report Type: Spontaneous
  Country: US (occurrence: US)
  Receive Date: 20200117
  Receipt Date: 20220222
  Transmission Date: 20220423
  Serious: No
  Sender: FDA-Public Use
  Company Number: US-UCBSA-2019001150

PATIENT
  Age: 25 Year
  Sex: Male

DRUGS (1)
  1. KEPPRA [Suspect]
     Active Substance: LEVETIRACETAM
     Indication: Product used for unknown indication
     Dosage: 250 MG STRENGTH, UNK

REACTIONS (3)
  - Seizure [Unknown]
  - Drug hypersensitivity [Unknown]
  - Product use issue [Unknown]
